FAERS Safety Report 5451909-1 (Version None)
Quarter: 2007Q3

REPORT INFORMATION
  Report Type: 
  Country: None (occurrence: None)
  Receive Date: 20070912
  Receipt Date: 20070827
  Transmission Date: 20080115
  Serious: Yes (Other)
  Sender: FDA-Public Use
  Company Number: 8026375

PATIENT
  Age: 14 Year
  Sex: Female
  Weight: 65 kg

DRUGS (2)
  1. XYZAL [Suspect]
     Dosage: 25 MG ONCE PO
     Route: 048
     Dates: start: 20070827, end: 20070827
  2. PARACETAMOL [Suspect]
     Dosage: 3500 MG ONCE
     Dates: start: 20070827, end: 20070827

REACTIONS (3)
  - FATIGUE [None]
  - INCORRECT DOSE ADMINISTERED [None]
  - SUICIDE ATTEMPT [None]
